FAERS Safety Report 7269919-0 (Version None)
Quarter: 2011Q1

REPORT INFORMATION
  Report Type: 
  Country: None (occurrence: None)
  Receive Date: 20110202
  Receipt Date: 20110124
  Transmission Date: 20110831
  Serious: Yes (Other)
  Sender: FDA-Public Use
  Company Number: US-PFIZER INC-2011019586

PATIENT
  Age: 35 Year
  Sex: Male

DRUGS (10)
  1. ATAZANAVIR [Suspect]
     Indication: LENTIVIRUS TEST POSITIVE
  2. RIFABUTIN [Suspect]
     Indication: MYCOBACTERIUM AVIUM COMPLEX INFECTION
  3. CLARITHROMYCIN [Suspect]
     Dosage: UNK
  4. LEVETIRACETAM [Suspect]
     Indication: PARTIAL SEIZURES
     Dosage: 1000 MG (NR,500 MG TWICE DAILY)
     Route: 048
  5. LEVETIRACETAM [Suspect]
     Dosage: 3000 MG (NR,1500 MG TWICE DAILY)
     Route: 048
  6. RITONAVIR [Suspect]
     Indication: LENTIVIRUS TEST POSITIVE
  7. TRUVADA [Suspect]
     Indication: LENTIVIRUS TEST POSITIVE
  8. CLONAZEPAM [Suspect]
  9. SERTRALINE HYDROCHLORIDE [Suspect]
  10. DAPSONE [Suspect]

REACTIONS (5)
  - MELAENA [None]
  - CONVULSION [None]
  - HAEMATURIA [None]
  - THROMBOCYTOPENIA [None]
  - ANAEMIA [None]
